FAERS Safety Report 19324904 (Version 1)
Quarter: 2021Q2

REPORT INFORMATION
  Report Type: Spontaneous
  Country: PT (occurrence: PT)
  Receive Date: 20210528
  Receipt Date: 20210528
  Transmission Date: 20210717
  Serious: Yes (Other)
  Sender: FDA-Public Use
  Company Number: PT-ACCORD-225822

PATIENT
  Age: 66 Year
  Sex: Female

DRUGS (5)
  1. IDARUBICIN [Concomitant]
     Active Substance: IDARUBICIN
     Indication: ACUTE MYELOID LEUKAEMIA
     Dosage: 7 + 3 INDUCTION CHEMOTHERAPY
  2. CYTARABINE/CYTARABINE HYDROCHLORIDE/CYTARABINE OCFOSFATE [Concomitant]
     Active Substance: CYTARABINE
     Indication: ACUTE MYELOID LEUKAEMIA
     Dosage: 7 + 3 INDUCTION CHEMOTHERAPY
  3. ITRACONAZOLE. [Suspect]
     Active Substance: ITRACONAZOLE
     Indication: PROPHYLAXIS
  4. VANCOMYCIN [Concomitant]
     Active Substance: VANCOMYCIN
     Indication: FEBRILE INFECTION
  5. MEROPENEM. [Concomitant]
     Active Substance: MEROPENEM
     Indication: FEBRILE INFECTION

REACTIONS (1)
  - Hepatotoxicity [Unknown]
